FAERS Safety Report 12116504 (Version 1)
Quarter: 2016Q1

REPORT INFORMATION
  Report Type: Not Available
  Country: US (occurrence: US)
  Receive Date: 20160225
  Receipt Date: 20160225
  Transmission Date: 20160526
  Serious: Yes (Hospitalization)
  Sender: FDA-Public Use
  Company Number: US-ANIPHARMA-2016-US-000802

PATIENT
  Age: 61 Year
  Sex: Male

DRUGS (2)
  1. OXYCODONE (NON-SPECIFIC) [Suspect]
     Active Substance: OXYCODONE
     Route: 048
  2. MORPHINE [Suspect]
     Active Substance: MORPHINE
     Dosage: 1 MG EVERY 4 HOURS
     Route: 042

REACTIONS (1)
  - Colonic pseudo-obstruction [Unknown]
